FAERS Safety Report 14711607 (Version 1)
Quarter: 2018Q2

REPORT INFORMATION
  Report Type: Spontaneous
  Country: US (occurrence: US)
  Receive Date: 20180403
  Receipt Date: 20180403
  Transmission Date: 20180711
  Serious: No
  Sender: FDA-Public Use
  Company Number: US-MATRIXX INITIATIVES, INC.-2045051

PATIENT
  Age: 70 Year
  Sex: Female
  Weight: 69.09 kg

DRUGS (3)
  1. MULTI-VITAMINS [Concomitant]
  2. UNSPECIFIED STEROIDS [Suspect]
     Active Substance: UNSPECIFIED INGREDIENT
  3. ZICAM COLD REMEDY NASAL SWABS (HOMEOPATHICS) [Suspect]
     Active Substance: HOMEOPATHICS\ZINC ACETATE\ZINC GLUCONATE
     Indication: NASOPHARYNGITIS
     Route: 045
     Dates: start: 20180319, end: 20180325

REACTIONS (2)
  - Dysgeusia [Not Recovered/Not Resolved]
  - Anosmia [Not Recovered/Not Resolved]
